FAERS Safety Report 8528533-7 (Version None)
Quarter: 2012Q3

REPORT INFORMATION
  Report Type: 
  Country: None (occurrence: None)
  Receive Date: 20120723
  Receipt Date: 20120712
  Transmission Date: 20120928
  Serious: No
  Sender: FDA-Public Use
  Company Number: US-009507513-1207USA003870

PATIENT

DRUGS (2)
  1. ASMANEX TWISTHALER [Suspect]
     Indication: ASTHMA
     Dosage: 220 MICROGRAM, BID
     Route: 055
     Dates: start: 20100101
  2. NEXIUM [Concomitant]

REACTIONS (4)
  - COUGH [None]
  - INCREASED UPPER AIRWAY SECRETION [None]
  - NASAL CONGESTION [None]
  - DEVICE MALFUNCTION [None]
